FAERS Safety Report 9757516 (Version 2)
Quarter: 2014Q1

REPORT INFORMATION
  Report Type: Spontaneous
  Country: SI (occurrence: SI)
  Receive Date: 20131216
  Receipt Date: 20140108
  Transmission Date: 20141002
  Serious: Yes (Other)
  Sender: FDA-Public Use
  Company Number: SI-AMGEN-SVNSP2013087457

PATIENT
  Age: 37 Year
  Sex: Female
  Weight: 68.98 kg

DRUGS (2)
  1. ENBREL [Suspect]
     Indication: RHEUMATOID ARTHRITIS
     Dosage: 50 MG, ONCE PER 14 DAYS
     Route: 058
     Dates: start: 20070420, end: 20130917
  2. METHOTREXAT /00113801/ [Suspect]
     Indication: RHEUMATOID ARTHRITIS
     Dosage: 10 MG, WEEKLY
     Route: 065
     Dates: start: 20040422

REACTIONS (3)
  - Myeloproliferative disorder [Recovering/Resolving]
  - Chronic myeloid leukaemia [Unknown]
  - Chromosome analysis abnormal [Unknown]
